FAERS Safety Report 9376230 (Version 1)
Quarter: 2013Q3

REPORT INFORMATION
  Report Type: Spontaneous
  Country: TR (occurrence: TR)
  Receive Date: 20130701
  Receipt Date: 20130701
  Transmission Date: 20140515
  Serious: Yes (Hospitalization)
  Sender: FDA-Public Use
  Company Number: PHHY2013TR065466

PATIENT
  Age: 13 Year
  Sex: Female

DRUGS (6)
  1. LOSARTAN [Suspect]
     Indication: HYPERTENSION
  2. LOSARTAN [Suspect]
     Indication: OBESITY
  3. RAMIPRIL [Suspect]
     Indication: HYPERTENSION
  4. RAMIPRIL [Suspect]
     Indication: OBESITY
  5. HYDROCHLOROTHIAZIDE [Concomitant]
     Indication: HYPERTENSION
  6. HYDROCHLOROTHIAZIDE [Concomitant]
     Indication: OBESITY

REACTIONS (5)
  - Loss of consciousness [Unknown]
  - Confusional state [Unknown]
  - Renal failure acute [Recovered/Resolved]
  - Oliguria [Recovered/Resolved]
  - Blood pressure decreased [Unknown]
